FAERS Safety Report 4706054-7 (Version None)
Quarter: 2005Q2

REPORT INFORMATION
  Report Type: 
  Country: None (occurrence: None)
  Receive Date: 20050629
  Receipt Date: 20050620
  Transmission Date: 20051028
  Serious: Yes (Other)
  Sender: FDA-Public Use
  Company Number: 2005090819

PATIENT
  Age: 90 Year
  Sex: Female

DRUGS (3)
  1. DIFLUCAN [Suspect]
     Indication: CANDIDIASIS
     Dosage: 100 MG (100 MG, QD), ORAL
     Route: 048
     Dates: start: 20050509
  2. ALL OTHER THERAPEUTIC PRODUCTS (ALL OTHER THERAPEUTIC PRODUCTS) [Concomitant]
  3. INSULIN [Concomitant]

REACTIONS (8)
  - ABNORMAL BEHAVIOUR [None]
  - BLOOD GLUCOSE DECREASED [None]
  - DIFFICULTY IN WALKING [None]
  - ORAL INTAKE REDUCED [None]
  - PARANOIA [None]
  - SCREAMING [None]
  - SPEECH DISORDER [None]
  - WEIGHT FLUCTUATION [None]
